FAERS Safety Report 24002926 (Version 1)
Quarter: 2024Q2

REPORT INFORMATION
  Report Type: Spontaneous
  Country: US (occurrence: US)
  Receive Date: 20240624
  Receipt Date: 20240624
  Transmission Date: 20240716
  Serious: No
  Sender: FDA-Public Use
  Company Number: US-ROCHE-10000000387

PATIENT
  Sex: Female

DRUGS (2)
  1. ACTEMRA [Suspect]
     Active Substance: TOCILIZUMAB
     Indication: Rheumatoid arthritis
     Dosage: STRENGTH: ACTPEN 162 MG/0.9 M
     Route: 058
     Dates: start: 202309
  2. DUPIXENT SYR (2-PK) [Concomitant]

REACTIONS (3)
  - Nasopharyngitis [Recovered/Resolved]
  - Lung disorder [Recovered/Resolved]
  - Wheezing [Recovered/Resolved]
